FAERS Safety Report 4390829-0 (Version None)
Quarter: 2004Q3

REPORT INFORMATION
  Report Type: 
  Country: None (occurrence: None)
  Receive Date: 20040706
  Receipt Date: 20040706
  Transmission Date: 20050211
  Serious: Yes (Hospitalization)
  Sender: FDA-Public Use
  Company Number: None

PATIENT
  Age: 75 Year
  Sex: Male
  Weight: 84.5 kg

DRUGS (13)
  1. HEPARIN [Suspect]
     Dosage: IV FLUSHES, T
     Route: 042
     Dates: start: 20040112, end: 20040113
  2. LOVENOX [Suspect]
     Indication: PROPHYLAXIS
     Dosage: SQ Q12H
     Dates: start: 20040112, end: 20040114
  3. ACETAMINOPHEN [Concomitant]
  4. ASPIRIN [Concomitant]
  5. CEFAZOLIN [Concomitant]
  6. PLAVIX [Concomitant]
  7. LOVENOX [Concomitant]
  8. LASIX [Concomitant]
  9. LOPRESSOR [Concomitant]
  10. MORPHINE [Concomitant]
  11. POTASSIUM [Concomitant]
  12. ZANTAC [Concomitant]
  13. ZOCOR [Concomitant]

REACTIONS (2)
  - ANTIBODY TEST POSITIVE [None]
  - THROMBOCYTOPENIA [None]
